FAERS Safety Report 4285352-8 (Version None)
Quarter: 2004Q1

REPORT INFORMATION
  Report Type: 
  Country: None (occurrence: None)
  Receive Date: 20040203
  Receipt Date: 20040203
  Transmission Date: 20041129
  Serious: Yes (Hospitalization)
  Sender: FDA-Public Use
  Company Number: None

PATIENT
  Age: 86 Year
  Sex: Female

DRUGS (14)
  1. HUMALOG [Suspect]
     Indication: DIABETES MELLITUS
     Dosage: 25 U SQ HS /5 U TID SQ
     Route: 058
  2. REPAGLINIDE [Suspect]
     Indication: DIABETES MELLITUS
     Dosage: 0.5 MG TID
  3. DIGOXIN [Concomitant]
  4. DOCUSATE NA [Concomitant]
  5. FUROSEMIDE [Concomitant]
  6. ATORVASTATIN [Concomitant]
  7. METOPROLOL [Concomitant]
  8. M.V.I. [Concomitant]
  9. OXYBUTYNIN [Concomitant]
  10. RAMIPRIL [Concomitant]
  11. TYLENOL (CAPLET) [Concomitant]
  12. VIT C [Concomitant]
  13. ZINC SULFATE [Concomitant]
  14. METHYLPHENIDATE HCL [Concomitant]

REACTIONS (2)
  - ANAEMIA [None]
  - HYPOGLYCAEMIA [None]
